FAERS Safety Report 11831331 (Version 1)
Quarter: 2015Q4

REPORT INFORMATION
  Report Type: Spontaneous
  Country: PT (occurrence: PT)
  Receive Date: 20151214
  Receipt Date: 20151214
  Transmission Date: 20160305
  Serious: Yes (Disabling)
  Sender: FDA-Public Use
  Company Number: PT-ACTAVIS-2015-27338

PATIENT
  Age: 68 Year
  Sex: Female
  Weight: 65 kg

DRUGS (5)
  1. DOCETAXEL ACTAVIS [Suspect]
     Active Substance: DOCETAXEL
     Indication: BREAST CANCER
     Dosage: 100 MG/M2, 1/ THREE WEEKS (1 DOCETAXEL ADMINISTRATION CYCLE)
     Route: 042
     Dates: start: 20151102, end: 20151102
  2. EPIRRUBICINA [Concomitant]
     Active Substance: EPIRUBICIN
     Indication: BREAST CANCER
     Dosage: UNK UNK, CYCLICAL. PART FEC PROTOCOL. ADMINISTERED FOR 3 CYCLES EVERY 3 WEEKS BEFORE DOCETAXEL ALONE
     Route: 042
     Dates: start: 2015, end: 2015
  3. CICLOFOSFAMIDA [Concomitant]
     Active Substance: CYCLOPHOSPHAMIDE
     Indication: BREAST CANCER
     Dosage: UNK UNK, CYCLICAL. PART FEC PROTOCOL. ADMINISTERED FOR 3 CYCLES EVERY 3 WEEKS BEFORE DOCETAXEL ALONE
     Route: 042
     Dates: start: 2015, end: 2015
  4. FLUOROURACILO [Concomitant]
     Active Substance: FLUOROURACIL
     Indication: BREAST CANCER
     Dosage: UNK UNK, CYCLICAL.PART FEC PROTOCOL. ADMINISTERED FOR 3 CYCLES EVERY 3 WEEKS BEFORE DOCETAXEL ALONE.
     Route: 042
     Dates: start: 2015, end: 2015
  5. PREDNISOLONA                       /00016201/ [Concomitant]
     Indication: ALLERGY PROPHYLAXIS
     Dosage: 20 MG, UNK.PREMEDICATION, WERE ADMINISTERED 40 MG AND 80 MG ON THE DAY BEFORE THE DAY OF TREATMENT
     Route: 048
     Dates: start: 20151101, end: 20151102

REACTIONS (8)
  - Skin exfoliation [Not Recovered/Not Resolved]
  - Fatigue [Not Recovered/Not Resolved]
  - Oedema peripheral [Not Recovered/Not Resolved]
  - Pain in extremity [Not Recovered/Not Resolved]
  - Blindness unilateral [Not Recovered/Not Resolved]
  - Myalgia [Not Recovered/Not Resolved]
  - Palmar-plantar erythrodysaesthesia syndrome [Not Recovered/Not Resolved]
  - Arthralgia [Not Recovered/Not Resolved]

NARRATIVE: CASE EVENT DATE: 201511
